FAERS Safety Report 5255442-1 (Version None)
Quarter: 2007Q1

REPORT INFORMATION
  Report Type: 
  Country: None (occurrence: None)
  Receive Date: 20070305
  Receipt Date: 20070219
  Transmission Date: 20070707
  Serious: Yes (Hospitalization)
  Sender: FDA-Public Use
  Company Number: MX-ELI_LILLY_AND_COMPANY-MX200702003860

PATIENT
  Sex: Female

DRUGS (4)
  1. CYMBALTA [Suspect]
     Indication: DEPRESSION
     Dosage: 60 MG, UNK
     Route: 048
     Dates: start: 20070126
  2. REMERON /MEX/ [Concomitant]
     Indication: DEPRESSION
     Dosage: 15 MG, UNKNOWN
     Route: 048
     Dates: start: 20061211, end: 20070115
  3. REMERON /MEX/ [Concomitant]
     Dosage: 30 MG, UNKNOWN
     Route: 048
     Dates: start: 20070116
  4. TRILEPTAL [Concomitant]
     Indication: DEPRESSION
     Dosage: 1/2 TABLET, UNKNOWN
     Dates: start: 20070116

REACTIONS (7)
  - ANOREXIA [None]
  - ASTHENIA [None]
  - BALANCE DISORDER [None]
  - GAIT DISTURBANCE [None]
  - HYPERSENSITIVITY [None]
  - LARYNGOSPASM [None]
  - PNEUMONIA [None]
